FAERS Safety Report 5679876-6 (Version None)
Quarter: 2008Q1

REPORT INFORMATION
  Report Type: 
  Country: None (occurrence: None)
  Receive Date: 20080321
  Receipt Date: 20080311
  Transmission Date: 20080703
  Serious: Yes (Hospitalization)
  Sender: FDA-Public Use
  Company Number: 0012

PATIENT
  Age: 7 Year
  Sex: Male

DRUGS (3)
  1. INDOCIN [Suspect]
  2. IBUPROFEN [Suspect]
  3. DICLOFENAC SODIUM [Suspect]
     Dosage: RC
     Route: 054

REACTIONS (5)
  - DEHYDRATION [None]
  - HYPOVOLAEMIA [None]
  - JUVENILE ARTHRITIS [None]
  - PROCEDURAL VOMITING [None]
  - RENAL FAILURE ACUTE [None]
